FAERS Safety Report 5725661-6 (Version None)
Quarter: 2008Q2

REPORT INFORMATION
  Report Type: 
  Country: None (occurrence: None)
  Receive Date: 20080501
  Receipt Date: 20080418
  Transmission Date: 20081010
  Serious: Yes (Death)
  Sender: FDA-Public Use
  Company Number: JP-GENENTECH-259991

PATIENT
  Sex: Male

DRUGS (9)
  1. BEVACIZUMAB [Suspect]
     Indication: COLON CANCER RECURRENT
     Dosage: 5 MG/KG, QD
     Route: 041
     Dates: start: 20071009, end: 20071121
  2. OXALIPLATIN [Suspect]
     Indication: COLON CANCER RECURRENT
     Dosage: 80 MG/M2, QD
     Route: 041
     Dates: start: 20071009, end: 20071121
  3. FLUOROURACIL [Suspect]
     Indication: COLON CANCER RECURRENT
     Dosage: 400 MG/M2, QD
     Dates: start: 20071009, end: 20071122
  4. ISOVORIN [Suspect]
     Indication: COLON CANCER RECURRENT
     Dosage: 90 MG/M2, QD
     Route: 041
     Dates: start: 20071009, end: 20071122
  5. MS CONTIN [Suspect]
     Indication: PAIN
     Dosage: 90 MG, QD
     Route: 048
     Dates: start: 20071003, end: 20071206
  6. MORPHINE HCL ELIXIR [Concomitant]
     Indication: DRUG USE FOR UNKNOWN INDICATION
     Dates: start: 20071003, end: 20071206
  7. KYTRIL [Concomitant]
     Indication: DRUG USE FOR UNKNOWN INDICATION
     Dosage: UNK, UNK
     Dates: start: 20071009, end: 20071009
  8. DECADRON [Concomitant]
     Indication: DRUG USE FOR UNKNOWN INDICATION
     Dates: start: 20071009, end: 20071009
  9. HALOPERIDOL [Concomitant]
     Indication: DRUG USE FOR UNKNOWN INDICATION
     Dates: start: 20071121, end: 20071206

REACTIONS (3)
  - ACUTE RESPIRATORY DISTRESS SYNDROME [None]
  - DISSEMINATED INTRAVASCULAR COAGULATION [None]
  - PNEUMONIA [None]
